FAERS Safety Report 6957464-9 (Version None)
Quarter: 2010Q3

REPORT INFORMATION
  Report Type: 
  Country: None (occurrence: None)
  Receive Date: 20100831
  Receipt Date: 20100823
  Transmission Date: 20110219
  Serious: Yes (Other)
  Sender: FDA-Public Use
  Company Number: US-BAYER-200917980GPV

PATIENT
  Sex: Male

DRUGS (2)
  1. LEUKINE [Suspect]
     Indication: PROSTATE CANCER
     Dosage: FOR THE FIRST 14 DAYS EACH CYCLE
     Route: 058
  2. IPILIMUMAB [Suspect]
     Indication: PROSTATE CANCER
     Route: 042

REACTIONS (1)
  - CEREBROVASCULAR ACCIDENT [None]
